FAERS Safety Report 8815388 (Version 1)
Quarter: 2012Q4

REPORT INFORMATION
  Report Type: 
  Country: US (occurrence: US)
  Receive Date: 20120928
  Receipt Date: 20120928
  Transmission Date: 20130627
  Serious: No
  Sender: FDA-Public Use
  Company Number: US-B.I. PHARMACEUTICALS,INC./RIDGEFIELD-2012-BP-23536BP

PATIENT
  Sex: Male
  Weight: 32 kg

DRUGS (3)
  1. PRADAXA [Suspect]
     Indication: ATRIAL FIBRILLATION
     Dosage: 300 mg
     Route: 048
     Dates: start: 2010
  2. MAXIDE [Concomitant]
     Indication: HYPERTENSION
     Route: 048
  3. SOTALOL [Concomitant]
     Indication: ATRIAL FIBRILLATION
     Dosage: 240 mg
     Route: 048
     Dates: start: 2003

REACTIONS (2)
  - Benign prostatic hyperplasia [Not Recovered/Not Resolved]
  - Dysgeusia [Not Recovered/Not Resolved]
